FAERS Safety Report 16246107 (Version 11)
Quarter: 2020Q2

REPORT INFORMATION
  Report Type: Spontaneous
  Country: US (occurrence: US)
  Receive Date: 20190426
  Receipt Date: 20200413
  Transmission Date: 20200713
  Serious: Yes (Hospitalization, Other)
  Sender: FDA-Public Use
  Company Number: US-ACTELION-A-US2019-188827

PATIENT
  Age: 68 Year
  Sex: Female
  Weight: 102.49 kg

DRUGS (4)
  1. SPIRONOLACTONE. [Concomitant]
     Active Substance: SPIRONOLACTONE
  2. ADCIRCA [Concomitant]
     Active Substance: TADALAFIL
  3. OPSUMIT [Suspect]
     Active Substance: MACITENTAN
     Indication: PULMONARY ARTERIAL HYPERTENSION
     Dosage: 10 MG, QD
     Route: 048
     Dates: start: 20190312
  4. XARELTO [Concomitant]
     Active Substance: RIVAROXABAN

REACTIONS (14)
  - Oedema [Recovered/Resolved with Sequelae]
  - Nasopharyngitis [Unknown]
  - Sinus congestion [Unknown]
  - Upper respiratory tract congestion [Unknown]
  - Oropharyngeal pain [Unknown]
  - Endometrial adenocarcinoma [Recovered/Resolved]
  - Dyspnoea [Recovered/Resolved with Sequelae]
  - Pulmonary hypertension [Unknown]
  - Cough [Unknown]
  - Postmenopausal haemorrhage [Unknown]
  - Upper-airway cough syndrome [Unknown]
  - Hysterectomy [Unknown]
  - Vaginal haemorrhage [Not Recovered/Not Resolved]
  - Salpingo-oophorectomy bilateral [Unknown]

NARRATIVE: CASE EVENT DATE: 20190321
